FAERS Safety Report 11088473 (Version 7)
Quarter: 2018Q1

REPORT INFORMATION
  Report Type: Spontaneous
  Country: US (occurrence: US)
  Receive Date: 20150504
  Receipt Date: 20180220
  Transmission Date: 20180508
  Serious: Yes (Other)
  Sender: FDA-Public Use
  Company Number: US-PFIZER INC-2015143124

PATIENT
  Age: 55 Year
  Sex: Female
  Weight: 63.49 kg

DRUGS (46)
  1. LYRICA [Suspect]
     Active Substance: PREGABALIN
     Indication: ARTHROSCOPIC SURGERY
  2. MOBIC [Concomitant]
     Active Substance: MELOXICAM
     Indication: OSTEOARTHRITIS
     Dosage: 7.5 MG, 1X/DAY (AM)
  3. METOPROLOL XL [Concomitant]
     Active Substance: METOPROLOL SUCCINATE
     Indication: CARDIAC DISORDER
     Dosage: 25 MG, 1X/DAY (AM)
  4. BABY ASPIRIN [Concomitant]
     Active Substance: ASPIRIN
     Indication: CARDIAC DISORDER
     Dosage: 81 MG, 1X/DAY (PM)
  5. AMBIEN [Concomitant]
     Active Substance: ZOLPIDEM TARTRATE
     Indication: SOMNOLENCE
     Dosage: 5 MG, AS NEEDED
  6. CENTRUM SILVER [Concomitant]
     Active Substance: MINERALS\VITAMINS
     Dosage: UNK, 1X/DAY (MULTIPLE) (PM)
  7. VITAMIN E [Concomitant]
     Active Substance: .ALPHA.-TOCOPHEROL
     Dosage: 400 IU, 1X/DAY
  8. FISH OIL [Concomitant]
     Active Substance: FISH OIL
     Dosage: 1000 MG, 1X/DAY
  9. MAGNESIUM [Concomitant]
     Active Substance: MAGNESIUM
     Dosage: 250 MG, 1X/DAY (PM)
  10. VOLTAREN [Concomitant]
     Active Substance: DICLOFENAC SODIUM
     Dosage: UNK
  11. CRESTOR [Concomitant]
     Active Substance: ROSUVASTATIN CALCIUM
     Indication: CARDIAC DISORDER
     Dosage: 5 MG, 1X/DAY (PM)
  12. BIOTIN [Concomitant]
     Active Substance: BIOTIN
     Dosage: 5000 ?G, 1X/DAY (AM)
  13. LYRICA [Suspect]
     Active Substance: PREGABALIN
     Indication: LUMBAR SPINAL STENOSIS
     Dosage: 75 MG AT DAY AND 150 MG (2 OF 75 MG) BEFORE SHE WENT TO BED
     Route: 048
  14. LYRICA [Suspect]
     Active Substance: PREGABALIN
     Indication: INTERVERTEBRAL DISC DEGENERATION
     Dosage: 150 MG, ONCE A DAY Q PM (1 8 AM)
     Route: 048
  15. LYRICA [Suspect]
     Active Substance: PREGABALIN
     Indication: NERVE INJURY
     Dosage: 75 MG, THREE TIMES A DAY
     Route: 048
  16. IPRATROPIUM BROMIDE. [Concomitant]
     Active Substance: IPRATROPIUM BROMIDE
     Dosage: UNK, AS NEEDED
     Route: 045
  17. CYMBALTA [Concomitant]
     Active Substance: DULOXETINE HYDROCHLORIDE
     Indication: PAIN
     Dosage: 30 MG, 1X/DAY
  18. NITROGLYCERIN. [Concomitant]
     Active Substance: NITROGLYCERIN
     Indication: CARDIAC DISORDER
     Dosage: UNK, AS NEEDED
  19. OMEPRAZOLE. [Concomitant]
     Active Substance: OMEPRAZOLE
     Dosage: 40 MG, UNK
  20. ACYCLOVIR. [Concomitant]
     Active Substance: ACYCLOVIR
     Dosage: 1000 MG, UNK
  21. LYRICA [Suspect]
     Active Substance: PREGABALIN
     Indication: SCOLIOSIS
     Dosage: 150 MG, DAILY (DURING THE DAY)
     Dates: start: 2005
  22. LYRICA [Suspect]
     Active Substance: PREGABALIN
     Indication: SPINAL OSTEOARTHRITIS
     Dosage: 75 MG, ONCE A DAY EVERY AM
     Route: 048
  23. SINGULAIR [Concomitant]
     Active Substance: MONTELUKAST SODIUM
     Indication: SINUS PAIN
     Dosage: 10 MG, 1X/DAY
  24. ZOVIRAX [Concomitant]
     Active Substance: ACYCLOVIR
     Dosage: 400 MG, 2X/DAY (AM)
  25. CALCIUM [Concomitant]
     Active Substance: CALCIUM
     Dosage: 600 MG, 1X/DAY (AM)
  26. FISH OIL [Concomitant]
     Active Substance: FISH OIL
     Dosage: 1000 MG, UNK (WHEN NOT HAVING FISH)
  27. MELATONIN [Concomitant]
     Active Substance: MELATONIN
     Dosage: 5-6 MG (OCCASIONALLY)
  28. METOPROLOL SUCCINATE. [Concomitant]
     Active Substance: METOPROLOL SUCCINATE
     Dosage: 25 MG, UNK
  29. FLONASE [Concomitant]
     Active Substance: FLUTICASONE PROPIONATE
     Dosage: 1-2/DAY
     Route: 045
  30. VITAMIN D3 [Concomitant]
     Active Substance: CHOLECALCIFEROL
     Dosage: 1000 IU, 1X/DAY (AM)
  31. DULOXETINE. [Concomitant]
     Active Substance: DULOXETINE
     Dosage: 60 MG, UNK
  32. VITAMIN B12 [Concomitant]
     Active Substance: CYANOCOBALAMIN
     Dosage: 1000 ?G, 1X/DAY
  33. VITAMIN B12 [Concomitant]
     Active Substance: CYANOCOBALAMIN
     Dosage: 1000 UG, AS NEEDED
  34. MELOXICAM A [Concomitant]
     Dosage: 7.5 MG, UNK
  35. VOLTARENE GEL [Concomitant]
     Indication: BONE PAIN
     Dosage: 2 G, 4X/DAY (AS NEEDED)
  36. MONTELUKAST [Concomitant]
     Active Substance: MONTELUKAST SODIUM
     Dosage: 10 MG, UNK
  37. SALT [Concomitant]
     Active Substance: SODIUM CHLORIDE
     Dosage: UNK
  38. LYRICA [Suspect]
     Active Substance: PREGABALIN
     Indication: BACK DISORDER
     Dosage: 225 MG, DAILY (150MG; TIME: 1X/DAY-PM / 75 MG; TIME: 1X/DAY-AM)
  39. LYRICA [Suspect]
     Active Substance: PREGABALIN
     Indication: ROTATOR CUFF SYNDROME
     Dosage: 150 MG, ONCE A DAY (AT BEDTIME)
     Route: 048
  40. PRILOSEC [Concomitant]
     Active Substance: OMEPRAZOLE MAGNESIUM
     Indication: GASTROOESOPHAGEAL REFLUX DISEASE
     Dosage: 40 MG, 2X/DAY
  41. PREMARIN [Concomitant]
     Active Substance: ESTROGENS, CONJUGATED
     Indication: VULVOVAGINAL DRYNESS
     Dosage: 1-2 X/WEEK
  42. TYLENOL XL [Concomitant]
     Indication: OSTEOARTHRITIS
     Dosage: 500 MG, AS NEEDED
  43. TRAMADOL. [Concomitant]
     Active Substance: TRAMADOL
     Indication: SPINAL PAIN
     Dosage: 50 MG, AS NEEDED
  44. VITAMIN C [Concomitant]
     Active Substance: ASCORBIC ACID
     Dosage: 500 MG, 1X/DAY (AM)
  45. ROSUVASTATIN. [Concomitant]
     Active Substance: ROSUVASTATIN
     Dosage: 5 MG, UNK
  46. FORTEO [Concomitant]
     Active Substance: TERIPARATIDE
     Indication: OSTEOPOROSIS
     Dosage: UNK, DAILY SHOT

REACTIONS (6)
  - Somnolence [Unknown]
  - Sinus congestion [Unknown]
  - Sinusitis [Unknown]
  - Arterial occlusive disease [Unknown]
  - Drug intolerance [Unknown]
  - Myocardial infarction [Unknown]

NARRATIVE: CASE EVENT DATE: 2013
